FAERS Safety Report 4807252-4 (Version None)
Quarter: 2005Q4

REPORT INFORMATION
  Report Type: 
  Country: None (occurrence: None)
  Receive Date: 20051020
  Receipt Date: 20051020
  Transmission Date: 20060501
  Serious: Yes (Disabling)
  Sender: FDA-Public Use
  Company Number: None

PATIENT
  Age: 52 Year
  Sex: Female
  Weight: 86.1834 kg

DRUGS (2)
  1. PREDNISONE [Suspect]
     Indication: ASTHMA
     Dosage: 80MG  QD PO
     Route: 048
  2. PREDNISONE [Suspect]
     Indication: BRONCHITIS
     Dosage: 80MG  QD PO
     Route: 048

REACTIONS (1)
  - OSTEONECROSIS [None]
